FAERS Safety Report 7574005 (Version 4)
Quarter: 2012Q4

REPORT INFORMATION
  Report Type: 
  Country: US (occurrence: US)
  Receive Date: 20100907
  Receipt Date: 20121109
  Transmission Date: 20130627
  Serious: Yes (Hospitalization, Other)
  Sender: FDA-Public Use
  Company Number: US-BAYER-201032554NA

PATIENT
  Age: 25 Year
  Sex: Female
  Weight: 120.18 kg

DRUGS (6)
  1. YASMIN [Suspect]
     Dosage: UNK
     Route: 048
     Dates: start: 2003, end: 2006
  2. LEVAQUIN [Concomitant]
  3. CEFTRIAXONE [Concomitant]
  4. ZITHROMAX [Concomitant]
  5. TUSSIONEX [Concomitant]
  6. CEFPODOXIME [Concomitant]

REACTIONS (3)
  - Pulmonary embolism [Recovered/Resolved]
  - Chest pain [Recovered/Resolved]
  - Infertility [None]
